FAERS Safety Report 25742674 (Version 1)
Quarter: 2025Q3

REPORT INFORMATION
  Report Type: Spontaneous
  Country: EU (occurrence: EU)
  Receive Date: 20250830
  Receipt Date: 20250830
  Transmission Date: 20251020
  Serious: Yes (Other)
  Sender: CELLTRION
  Company Number: EU-ROCHE-10000359821

PATIENT

DRUGS (4)
  1. TRASTUZUMAB [Suspect]
     Active Substance: TRASTUZUMAB
     Indication: Breast cancer recurrent
     Route: 065
  2. PERTUZUMAB [Suspect]
     Active Substance: PERTUZUMAB
     Indication: Breast cancer recurrent
     Route: 065
  3. DOCETAXEL [Suspect]
     Active Substance: DOCETAXEL
     Indication: Breast cancer
     Route: 065
  4. DOCETAXEL [Concomitant]
     Active Substance: DOCETAXEL
     Indication: Breast cancer recurrent
     Route: 065

REACTIONS (8)
  - Bronchiectasis [Unknown]
  - Lower respiratory tract infection fungal [Not Recovered/Not Resolved]
  - Pneumonia pseudomonal [Unknown]
  - Atypical mycobacterial lower respiratory tract infection [Recovered/Resolved]
  - Pneumonia staphylococcal [Unknown]
  - Fungal infection [Unknown]
  - Bacterial disease carrier [Unknown]
  - Off label use [Unknown]
